FAERS Safety Report 18250423 (Version 1)
Quarter: 2020Q3

REPORT INFORMATION
  Report Type: Report from Study
  Country: DE (occurrence: DE)
  Receive Date: 20200909
  Receipt Date: 20200909
  Transmission Date: 20201103
  Serious: Yes (Hospitalization)
  Sender: FDA-Public Use
  Company Number: DE-JNJFOC-A-CH2020-208645

PATIENT
  Age: 43 Year
  Sex: Female
  Weight: 73 kg

DRUGS (10)
  1. ADEMPAS [Concomitant]
     Active Substance: RIOCIGUAT
     Dosage: 3 MG, QD
     Route: 048
     Dates: start: 2019
  2. UPTRAVI [Suspect]
     Active Substance: SELEXIPAG
     Indication: PULMONARY ARTERIAL HYPERTENSION
     Dosage: 1600 MCG, QD
     Route: 048
     Dates: start: 20191209
  3. UPTRAVI [Suspect]
     Active Substance: SELEXIPAG
     Dosage: 400 MCG, QD
     Route: 048
     Dates: start: 20191028, end: 20191103
  4. UPTRAVI [Suspect]
     Active Substance: SELEXIPAG
     Dosage: 800 MCG, QD
     Route: 048
     Dates: start: 20191111, end: 20191117
  5. DABIGATRAN [Concomitant]
     Active Substance: DABIGATRAN
     Indication: ANTICOAGULANT THERAPY
     Dosage: UNK
     Route: 048
     Dates: start: 201909
  6. UPTRAVI [Suspect]
     Active Substance: SELEXIPAG
     Dosage: 1200 MCG, QD
     Route: 048
     Dates: start: 20191125, end: 20191201
  7. UPTRAVI [Suspect]
     Active Substance: SELEXIPAG
     Dosage: 1400 MCG, QD
     Route: 048
     Dates: start: 20191202, end: 20191208
  8. UPTRAVI [Suspect]
     Active Substance: SELEXIPAG
     Dosage: 600 MCG, QD
     Route: 048
     Dates: start: 20191104, end: 20191110
  9. UPTRAVI [Suspect]
     Active Substance: SELEXIPAG
     Dosage: 1000 MCG, QD
     Route: 048
     Dates: start: 20191118, end: 20191124
  10. OPSUMIT [Suspect]
     Active Substance: MACITENTAN
     Indication: PULMONARY ARTERIAL HYPERTENSION
     Dosage: 10 MG, QD
     Route: 048
     Dates: start: 2014

REACTIONS (2)
  - Transitional cell carcinoma [Not Recovered/Not Resolved]
  - Investigation [Recovered/Resolved with Sequelae]

NARRATIVE: CASE EVENT DATE: 20200309
